FAERS Safety Report 23595017 (Version 2)
Quarter: 2024Q2

REPORT INFORMATION
  Report Type: Spontaneous
  Country: DE (occurrence: DE)
  Receive Date: 20240305
  Receipt Date: 20240411
  Transmission Date: 20240716
  Serious: Yes (Other)
  Sender: FDA-Public Use
  Company Number: DE-002147023-NVSC2023DE107646

PATIENT
  Sex: Female

DRUGS (2)
  1. VALSARTAN [Suspect]
     Active Substance: VALSARTAN
     Indication: Hypertension
     Dosage: UNK
     Route: 065
     Dates: start: 2023, end: 2023
  2. PROVAS [Suspect]
     Active Substance: VALSARTAN
     Indication: Hypertension
     Dosage: UNK
     Route: 065
     Dates: start: 20230221, end: 20230505

REACTIONS (8)
  - Blood pressure systolic increased [Unknown]
  - Hypertension [Unknown]
  - Arthralgia [Recovering/Resolving]
  - Blister [Unknown]
  - Cough [Unknown]
  - Gait inability [Unknown]
  - Muscle spasms [Not Recovered/Not Resolved]
  - Rash [Unknown]
